FAERS Safety Report 5826497-8 (Version None)
Quarter: 2008Q3

REPORT INFORMATION
  Report Type: 
  Country: None (occurrence: None)
  Receive Date: 20080724
  Receipt Date: 20080717
  Transmission Date: 20090109
  Serious: Yes (Hospitalization, Other)
  Sender: FDA-Public Use
  Company Number: 2006-07-0189

PATIENT
  Age: 50 Year
  Sex: Female
  Weight: 95.2554 kg

DRUGS (7)
  1. PEG-INTRON [Suspect]
     Indication: HEPATITIS C
     Dosage: 80 MCG; /WK; SC, 48 MCG; /WK; SC
     Route: 058
     Dates: start: 20060526, end: 20080713
  2. PEG-INTRON [Suspect]
     Indication: HEPATITIS C
     Dosage: 80 MCG; /WK; SC, 48 MCG; /WK; SC
     Route: 058
     Dates: start: 20060505
  3. REBETOL [Suspect]
     Indication: HEPATITIS C
     Dosage: 1000 MG; ; PO, ; PO
     Route: 048
     Dates: start: 20060526, end: 20080713
  4. REBETOL [Suspect]
     Indication: HEPATITIS C
     Dosage: 1000 MG; ; PO, ; PO
     Route: 048
     Dates: start: 20060505
  5. DARVOCET-N 100 [Concomitant]
  6. KLONOPIN [Concomitant]
  7. SEROQUEL [Concomitant]

REACTIONS (29)
  - ABDOMINAL PAIN UPPER [None]
  - ASTHENIA [None]
  - ATELECTASIS [None]
  - BLOOD COUNT ABNORMAL [None]
  - BLOOD PRESSURE DECREASED [None]
  - CONTUSION [None]
  - DECREASED APPETITE [None]
  - EPISTAXIS [None]
  - FACIAL PALSY [None]
  - FATIGUE [None]
  - FEELING COLD [None]
  - GASTROOESOPHAGEAL REFLUX DISEASE [None]
  - HEART RATE DECREASED [None]
  - HEPATIC PAIN [None]
  - INJECTION SITE ERYTHEMA [None]
  - INJECTION SITE SWELLING [None]
  - MENORRHAGIA [None]
  - NASOPHARYNGITIS [None]
  - NAUSEA [None]
  - OEDEMA PERIPHERAL [None]
  - PAIN IN EXTREMITY [None]
  - PALLOR [None]
  - PANCREATIC ENLARGEMENT [None]
  - PLATELET COUNT DECREASED [None]
  - PRODUCTIVE COUGH [None]
  - PYREXIA [None]
  - RED BLOOD CELL COUNT DECREASED [None]
  - WEIGHT DECREASED [None]
  - WHITE BLOOD CELL COUNT DECREASED [None]
